FAERS Safety Report 5719978-9 (Version None)
Quarter: 2008Q2

REPORT INFORMATION
  Report Type: 
  Country: None (occurrence: None)
  Receive Date: 20080425
  Receipt Date: 20080425
  Transmission Date: 20081010
  Serious: Yes (Hospitalization, Other)
  Sender: FDA-Public Use
  Company Number: None

PATIENT
  Sex: Female

DRUGS (1)
  1. 3M ESPE CONTROL RX 1.1% NAF DENTIFRICE [Suspect]
     Dosage: PEA-SIZED, TOPICAL
     Route: 061
     Dates: start: 20080219

REACTIONS (4)
  - LIP SWELLING [None]
  - LOSS OF CONSCIOUSNESS [None]
  - PHARYNGEAL OEDEMA [None]
  - RETCHING [None]
